FAERS Safety Report 8444151-3 (Version None)
Quarter: 2012Q2

REPORT INFORMATION
  Report Type: 
  Country: None (occurrence: None)
  Receive Date: 20120618
  Receipt Date: 20120608
  Transmission Date: 20120825
  Serious: No
  Sender: FDA-Public Use
  Company Number: US-B.I. PHARMACEUTICALS,INC./RIDGEFIELD-2012-BP-13383BP

PATIENT
  Age: 44 Year
  Sex: Female

DRUGS (2)
  1. PRADAXA [Suspect]
     Indication: ANTICOAGULANT THERAPY
     Dosage: 300 MG
     Route: 048
     Dates: start: 20120605
  2. PRADAXA [Suspect]
     Indication: VENTRICULAR ASSIST DEVICE INSERTION

REACTIONS (1)
  - ACTIVATED PARTIAL THROMBOPLASTIN TIME SHORTENED [None]
